FAERS Safety Report 20757225 (Version 2)
Quarter: 2022Q2

REPORT INFORMATION
  Report Type: Spontaneous
  Country: CN (occurrence: CN)
  Receive Date: 20220427
  Receipt Date: 20220504
  Transmission Date: 20220721
  Serious: Yes (Life-Threatening, Hospitalization, Other)
  Sender: FDA-Public Use
  Company Number: CN-MLMSERVICE-20220418-3506632-1

PATIENT
  Age: 53 Year
  Sex: Female

DRUGS (2)
  1. IRINOTECAN HYDROCHLORIDE [Suspect]
     Active Substance: IRINOTECAN HYDROCHLORIDE
     Indication: Small cell carcinoma
     Dosage: UNK, CYCLIC (4CYCLES)
  2. CISPLATIN [Suspect]
     Active Substance: CISPLATIN
     Indication: Small cell carcinoma
     Dosage: UNK UNK, CYCLIC (4CYCLES)

REACTIONS (3)
  - Cryptococcal cutaneous infection [Recovered/Resolved]
  - Cryptococcosis [Recovered/Resolved]
  - Myelosuppression [Unknown]
